FAERS Safety Report 21897767 (Version 2)
Quarter: 2023Q1

REPORT INFORMATION
  Report Type: Spontaneous
  Country: PL (occurrence: PL)
  Receive Date: 20230123
  Receipt Date: 20230331
  Transmission Date: 20230418
  Serious: Yes (Hospitalization, Other)
  Sender: FDA-Public Use
  Company Number: PL-BoehringerIngelheim-2023-BI-213878

PATIENT
  Age: 65 Year
  Sex: Male

DRUGS (2)
  1. OFEV [Suspect]
     Active Substance: NINTEDANIB
     Indication: Systemic sclerosis pulmonary
     Dates: start: 202205, end: 202211
  2. OFEV [Suspect]
     Active Substance: NINTEDANIB
     Indication: Sjogren^s syndrome
     Dates: start: 20230222

REACTIONS (8)
  - Colitis ischaemic [Recovered/Resolved]
  - Pneumonia influenzal [Unknown]
  - Weight decreased [Recovered/Resolved]
  - Diverticulitis [Recovered/Resolved]
  - Helicobacter infection [Recovered/Resolved]
  - Diarrhoea [Recovered/Resolved]
  - Abdominal pain [Recovered/Resolved]
  - Vomiting [Recovered/Resolved]

NARRATIVE: CASE EVENT DATE: 20221101
